FAERS Safety Report 7119623-4 (Version None)
Quarter: 2010Q4

REPORT INFORMATION
  Report Type: 
  Country: None (occurrence: None)
  Receive Date: 20101123
  Receipt Date: 20101117
  Transmission Date: 20110411
  Serious: Yes (Other)
  Sender: FDA-Public Use
  Company Number: US-BRISTOL-MYERS SQUIBB COMPANY-15394901

PATIENT
  Age: 35 Year
  Sex: Female

DRUGS (3)
  1. EFAVIRENZ [Suspect]
     Indication: ANTIRETROVIRAL THERAPY
  2. LOPINAVIR [Interacting]
     Indication: ANTIRETROVIRAL THERAPY
  3. IMPLANON [Interacting]
     Indication: CONTRACEPTION

REACTIONS (4)
  - ABORTION INDUCED [None]
  - DRUG INTERACTION [None]
  - PREGNANCY [None]
  - PREGNANCY ON CONTRACEPTIVE [None]
